FAERS Safety Report 4977465-X (Version None)
Quarter: 2006Q2

REPORT INFORMATION
  Report Type: 
  Country: None (occurrence: None)
  Receive Date: 20060413
  Receipt Date: 20060404
  Transmission Date: 20061013
  Serious: Yes (Other)
  Sender: FDA-Public Use
  Company Number: 2006040930

PATIENT
  Age: 76 Year
  Sex: Male
  Weight: 73 kg

DRUGS (3)
  1. XALATAN [Suspect]
     Indication: GLAUCOMA
  2. COVERSYL (PERINDOPRIL) [Suspect]
     Indication: SYSTOLIC HYPERTENSION
     Dosage: 4 MG (4 MG, 1 IN 1 D), ORAL
     Route: 048
     Dates: start: 20050202
  3. BETOPIC (BETAXOLOL HYDROCHLORIDE) [Concomitant]

REACTIONS (3)
  - BLOOD PRESSURE SYSTOLIC INCREASED [None]
  - DRUG INTERACTION [None]
  - INTRAOCULAR PRESSURE INCREASED [None]
